FAERS Safety Report 15964301 (Version 2)
Quarter: 2019Q2

REPORT INFORMATION
  Report Type: Spontaneous
  Country: FR (occurrence: FR)
  Receive Date: 20190215
  Receipt Date: 20190429
  Transmission Date: 20190711
  Serious: Yes (Hospitalization, Other)
  Sender: FDA-Public Use
  Company Number: FR-SUN PHARMACEUTICAL INDUSTRIES LTD-2019R1-199138

PATIENT
  Age: 79 Year
  Sex: Male

DRUGS (1)
  1. DOXYCYCLINE. [Suspect]
     Active Substance: DOXYCYCLINE
     Indication: ERYTHEMA MIGRANS
     Dosage: UNK
     Route: 065

REACTIONS (6)
  - Dyspnoea [Recovering/Resolving]
  - Decubitus ulcer [Recovering/Resolving]
  - Acquired diaphragmatic eventration [Recovering/Resolving]
  - Polyneuropathy [Recovering/Resolving]
  - Restrictive pulmonary disease [Recovering/Resolving]
  - Diaphragmatic paralysis [Recovering/Resolving]
